FAERS Safety Report 9838076 (Version 2)
Quarter: 2014Q2

REPORT INFORMATION
  Report Type: Report from Study
  Country: US (occurrence: US)
  Receive Date: 20140123
  Receipt Date: 20140417
  Transmission Date: 20141212
  Serious: Yes (Hospitalization, Other)
  Sender: FDA-Public Use
  Company Number: US-BAXTER-2014BAX002174

PATIENT
  Sex: Female

DRUGS (1)
  1. GAMMAGARD LIQUID [Suspect]
     Indication: PRODUCT USED FOR UNKNOWN INDICATION
     Route: 058

REACTIONS (6)
  - Staphylococcal infection [Unknown]
  - Pyrexia [Unknown]
  - Vomiting [Unknown]
  - Viral infection [Unknown]
  - Infusion site scab [Not Recovered/Not Resolved]
  - Infusion site infection [Not Recovered/Not Resolved]
